FAERS Safety Report 25921767 (Version 1)
Quarter: 2025Q4

REPORT INFORMATION
  Report Type: Spontaneous
  Country: CN (occurrence: CN)
  Receive Date: 20251014
  Receipt Date: 20251014
  Transmission Date: 20260117
  Serious: Yes (Hospitalization, Other)
  Sender: ABBVIE
  Company Number: CN-ABBVIE-6500017

PATIENT
  Age: 67 Year
  Sex: Male

DRUGS (5)
  1. VENETOCLAX [Suspect]
     Active Substance: VENETOCLAX
     Indication: Chemotherapy
     Route: 048
     Dates: start: 20250912, end: 20250915
  2. PREDNISONE ACETATE [Concomitant]
     Active Substance: PREDNISONE ACETATE
     Indication: Chemotherapy
     Route: 048
     Dates: start: 20250912, end: 20250915
  3. OLVEREMBATINIB [Concomitant]
     Active Substance: OLVEREMBATINIB
     Indication: Chemotherapy
     Route: 048
     Dates: start: 20250912, end: 20250915
  4. VINDESINE SULFATE [Concomitant]
     Active Substance: VINDESINE SULFATE
     Indication: Chemotherapy
     Dosage: INTRAVENOUS DRIP
     Route: 065
     Dates: start: 20250912, end: 20250912
  5. POSACONAZOLE [Concomitant]
     Active Substance: POSACONAZOLE
     Indication: Product used for unknown indication

REACTIONS (14)
  - Circulatory collapse [Unknown]
  - Tumour lysis syndrome [Unknown]
  - Sepsis [Unknown]
  - Abdominal infection [Unknown]
  - Heart rate decreased [Unknown]
  - Acute hepatic failure [Unknown]
  - Pneumonia [Unknown]
  - Renal impairment [Unknown]
  - Multiple organ dysfunction syndrome [Unknown]
  - Septic shock [Unknown]
  - Myalgia [Unknown]
  - Platelet count decreased [Unknown]
  - White blood cell count [Unknown]
  - Coma [Unknown]

NARRATIVE: CASE EVENT DATE: 20250915
